FAERS Safety Report 17201854 (Version 2)
Quarter: 2020Q1

REPORT INFORMATION
  Report Type: Spontaneous
  Country: US (occurrence: US)
  Receive Date: 20191226
  Receipt Date: 20200127
  Transmission Date: 20200409
  Serious: Yes (Other)
  Sender: FDA-Public Use
  Company Number: US-BAUSCH-BL-2019-065007

PATIENT
  Age: 86 Year
  Sex: Male
  Weight: 68.1 kg

DRUGS (3)
  1. PREDNISONE. [Concomitant]
     Active Substance: PREDNISONE
     Indication: PLATELET COUNT DECREASED
  2. ATIVAN [Suspect]
     Active Substance: LORAZEPAM
     Indication: SCAN BRAIN
     Dosage: RECEIVED JUST ONE DOSE IN HOSPITAL
     Route: 065
     Dates: start: 201910, end: 201910
  3. ATIVAN [Suspect]
     Active Substance: LORAZEPAM
     Indication: PRODUCT USE IN UNAPPROVED INDICATION

REACTIONS (2)
  - Product use in unapproved indication [Unknown]
  - Intentional self-injury [Recovered/Resolved]

NARRATIVE: CASE EVENT DATE: 201910
